FAERS Safety Report 8115909-5 (Version None)
Quarter: 2012Q1

REPORT INFORMATION
  Report Type: 
  Country: None (occurrence: None)
  Receive Date: 20120206
  Receipt Date: 20120126
  Transmission Date: 20120608
  Serious: Yes (Hospitalization)
  Sender: FDA-Public Use
  Company Number: US-SANOFI-AVENTIS-2012SA006182

PATIENT
  Age: 51 Year
  Sex: Female
  Weight: 48.6 kg

DRUGS (3)
  1. DOCETAXEL [Suspect]
     Dosage: OVER 1 HOUR ON DAY 1
     Route: 042
     Dates: start: 20111207
  2. CISPLATIN [Suspect]
     Dosage: 1-2 HR ON DAY 1
     Route: 042
     Dates: start: 20111207
  3. BEVACIZUMAB [Suspect]
     Dosage: OVER 30-90 MIN OVER DAY 1
     Route: 042
     Dates: start: 20111207

REACTIONS (4)
  - WHITE BLOOD CELL COUNT DECREASED [None]
  - STOMATITIS [None]
  - NEUTROPHIL COUNT DECREASED [None]
  - HYPOPHOSPHATAEMIA [None]
